FAERS Safety Report 4824469-3 (Version None)
Quarter: 2005Q4

REPORT INFORMATION
  Report Type: 
  Country: None (occurrence: None)
  Receive Date: 20051108
  Receipt Date: 20051020
  Transmission Date: 20060501
  Serious: Yes (Death)
  Sender: FDA-Public Use
  Company Number: GBS051018833

PATIENT
  Age: 40 Year
  Sex: Male
  Weight: 80 kg

DRUGS (3)
  1. FLUOXETINE [Suspect]
  2. SERTRALINE HCL [Concomitant]
  3. ZOPICLONE [Concomitant]

REACTIONS (2)
  - ALCOHOL POISONING [None]
  - HYPOTHERMIA [None]
